FAERS Safety Report 8218141-X (Version None)
Quarter: 2012Q1

REPORT INFORMATION
  Report Type: 
  Country: None (occurrence: None)
  Receive Date: 20120316
  Receipt Date: 20120316
  Transmission Date: 20120608
  Serious: No
  Sender: FDA-Public Use
  Company Number: None

PATIENT
  Sex: Female

DRUGS (1)
  1. HCG 1234 [Suspect]
     Dates: start: 20120221, end: 20120223

REACTIONS (1)
  - HYPERSENSITIVITY [None]
